FAERS Safety Report 8591666-3 (Version None)
Quarter: 2012Q3

REPORT INFORMATION
  Report Type: 
  Country: None (occurrence: None)
  Receive Date: 20120730
  Receipt Date: 20120713
  Transmission Date: 20120928
  Serious: Yes (Other)
  Sender: FDA-Public Use
  Company Number: 2012032866

PATIENT
  Age: 6 Year
  Sex: Male

DRUGS (2)
  1. HIZENTRA [Suspect]
  2. HIZENTRA [Suspect]
     Indication: IMMUNODEFICIENCY
     Dosage: 3 G 1X/WEEK, 200MG/ML, 1G X 1, 2G X 1
     Route: 058
     Dates: start: 20120215

REACTIONS (2)
  - INJECTION SITE VESICLES [None]
  - SCAB [None]
